FAERS Safety Report 25330349 (Version 1)
Quarter: 2025Q2

REPORT INFORMATION
  Report Type: Spontaneous
  Country: US (occurrence: None)
  Receive Date: 20250516
  Receipt Date: 20250516
  Transmission Date: 20250717
  Serious: Yes (Disabling)
  Sender: FDA-CTU
  Company Number: None

PATIENT
  Age: 39 Year
  Sex: Female
  Weight: 83.7 kg

DRUGS (5)
  1. AMOXICILLIN\CLAVULANIC ACID [Suspect]
     Active Substance: AMOXICILLIN\CLAVULANIC ACID
     Indication: Sinusitis
     Dates: start: 20250430, end: 20250505
  2. DIAZEPAM [Concomitant]
     Active Substance: DIAZEPAM
  3. BACLOFEN [Concomitant]
     Active Substance: BACLOFEN
  4. ZYRTEC [Concomitant]
     Active Substance: CETIRIZINE HYDROCHLORIDE
  5. PEPCID [Concomitant]
     Active Substance: FAMOTIDINE

REACTIONS (6)
  - Palpitations [None]
  - Arthralgia [None]
  - Arthralgia [None]
  - Pain in extremity [None]
  - Brain fog [None]
  - Mood altered [None]

NARRATIVE: CASE EVENT DATE: 20250502
